FAERS Safety Report 6047569-1 (Version None)
Quarter: 2009Q1

REPORT INFORMATION
  Report Type: 
  Country: None (occurrence: None)
  Receive Date: 20090123
  Receipt Date: 20090116
  Transmission Date: 20090719
  Serious: Yes (Death)
  Sender: FDA-Public Use
  Company Number: US-RANBAXY-2009RR-20633

PATIENT
  Age: 40 Year
  Sex: Female

DRUGS (6)
  1. OXYCODONE HCL [Suspect]
  2. CARISOPRODOL [Suspect]
  3. PROPRANOLOL [Suspect]
  4. CITALOPRAM [Suspect]
  5. QUETIAPINE FUMARATE [Suspect]
  6. FLUOXETINE [Suspect]

REACTIONS (1)
  - DRUG ABUSE [None]
